FAERS Safety Report 19761185 (Version 1)
Quarter: 2021Q3

REPORT INFORMATION
  Report Type: Report from Study
  Country: US (occurrence: US)
  Receive Date: 20210830
  Receipt Date: 20210830
  Transmission Date: 20211014
  Serious: Yes (Death, Other)
  Sender: FDA-Public Use
  Company Number: US-BRISTOL-MYERS SQUIBB COMPANY-BMS-2021-084051

PATIENT
  Age: 98 Year
  Sex: Female

DRUGS (1)
  1. APIXABAN [Suspect]
     Active Substance: APIXABAN
     Indication: CEREBROVASCULAR ACCIDENT PROPHYLAXIS
     Route: 065

REACTIONS (5)
  - Carotid artery aneurysm [Fatal]
  - Clostridium difficile infection [Fatal]
  - Chronic kidney disease [Fatal]
  - Atrial fibrillation [Fatal]
  - Hypertension [Fatal]

NARRATIVE: CASE EVENT DATE: 20210408
